FAERS Safety Report 8801279 (Version 1)
Quarter: 2012Q4

REPORT INFORMATION
  Report Type: 
  Country: US (occurrence: US)
  Receive Date: 20120921
  Receipt Date: 20120921
  Transmission Date: 20130627
  Serious: Yes (Congenital Anomaly, Other)
  Sender: FDA-Public Use
  Company Number: US-ROCHE-1131509

PATIENT
  Age: 9 Year
  Sex: Female

DRUGS (4)
  1. KLONOPIN [Suspect]
     Indication: ANXIETY
     Route: 064
  2. KLONOPIN [Suspect]
     Indication: PANIC ATTACK
     Route: 065
  3. KLONOPIN [Suspect]
     Route: 065
  4. KLONOPIN [Suspect]
     Route: 065

REACTIONS (7)
  - Premature baby [Unknown]
  - Heart disease congenital [Unknown]
  - Pulmonary malformation [Unknown]
  - Intelligence test abnormal [Unknown]
  - Mental retardation [Unknown]
  - Autism [Unknown]
  - Maternal exposure timing unspecified [Unknown]
